FAERS Safety Report 9417893 (Version 1)
Quarter: 2013Q3

REPORT INFORMATION
  Report Type: Spontaneous
  Country: SE (occurrence: SE)
  Receive Date: 20130724
  Receipt Date: 20130724
  Transmission Date: 20140515
  Serious: Yes (Life-Threatening)
  Sender: FDA-Public Use
  Company Number: SE-BAXTER-2013BAX028045

PATIENT
  Age: 23 Year
  Sex: Female

DRUGS (1)
  1. SEVOFLURANE BAXTER [Suspect]
     Indication: SEDATION
     Dosage: 1.2%, 10L/MIN MAINTENANCE
     Dates: start: 20130702

REACTIONS (1)
  - Haemolysis [Recovering/Resolving]
